FAERS Safety Report 25758402 (Version 3)
Quarter: 2025Q4

REPORT INFORMATION
  Report Type: Spontaneous
  Country: CA (occurrence: CA)
  Receive Date: 20250904
  Receipt Date: 20251020
  Transmission Date: 20260118
  Serious: Yes (Other)
  Sender: CURRAX PHARMACEUTICALS
  Company Number: CA-BAUSCH-BH-2025-016049

PATIENT
  Age: 65 Year
  Sex: Female
  Weight: 77.098 kg

DRUGS (11)
  1. CONTRAVE [Suspect]
     Active Substance: BUPROPION HYDROCHLORIDE\NALTREXONE HYDROCHLORIDE
     Indication: Weight control
     Dosage: STRENGTH: 90/8 MG
     Route: 048
     Dates: start: 20250315, end: 20250319
  2. CONTRAVE [Suspect]
     Active Substance: BUPROPION HYDROCHLORIDE\NALTREXONE HYDROCHLORIDE
     Indication: Dyspepsia
     Dosage: STRENGTH: 90/8 MG, ONE PILL IN THE MORNING
     Route: 048
     Dates: start: 20250710, end: 20250721
  3. CONTRAVE [Suspect]
     Active Substance: BUPROPION HYDROCHLORIDE\NALTREXONE HYDROCHLORIDE
     Dosage: STRENGTH: 90/8 MG, ONE PILL IN THE MORNING AND ONE PILL IN THE EVENING
     Route: 048
     Dates: start: 20250722, end: 20250804
  4. CONTRAVE [Suspect]
     Active Substance: BUPROPION HYDROCHLORIDE\NALTREXONE HYDROCHLORIDE
     Dosage: STRENGTH: 90/8 MG, TWO PILLS IN THE MORNING AND ONE PILL IN THE EVENING.
     Route: 048
     Dates: start: 20250805, end: 20250808
  5. CONTRAVE [Suspect]
     Active Substance: BUPROPION HYDROCHLORIDE\NALTREXONE HYDROCHLORIDE
     Dosage: STRENGTH: 90/8 MG, ONE TABLET PER DAY
     Route: 048
     Dates: start: 20250817, end: 202509
  6. BUSPIRONE [Suspect]
     Active Substance: BUSPIRONE HYDROCHLORIDE
     Indication: Dyspepsia
     Dosage: UNK
     Route: 065
     Dates: start: 20250315, end: 20250329
  7. METOCLOPRAMIDE [Suspect]
     Active Substance: METOCLOPRAMIDE
     Indication: Product used for unknown indication
     Dosage: UNK
     Route: 065
     Dates: end: 202510
  8. SENNA [Concomitant]
     Active Substance: SENNOSIDES
     Indication: Product used for unknown indication
     Dosage: UNK
  9. PANTOPRAZOLE [Concomitant]
     Active Substance: PANTOPRAZOLE
     Indication: Gastrointestinal disorder
     Dosage: ONE TABLET PER DAY, STARTED ABOUT ONE TO ONE AND A HALF YEARS AGO AND WAS ONGOING
     Route: 048
  10. FOLIC ACID [Concomitant]
     Active Substance: FOLIC ACID
     Indication: Thalassaemia minor
     Dosage: ONE TABLET PER DAY, FOR ABOUT TWENTY-FIVE YEARS AND WAS ONGOING
     Route: 048
  11. AMITRIPTYLINE [Concomitant]
     Active Substance: AMITRIPTYLINE
     Indication: Product used for unknown indication
     Dosage: DISCONTINUED ABOUT SIX MONTHS AGO
     Dates: end: 2025

REACTIONS (18)
  - Eyelid ptosis [Recovered/Resolved]
  - Gait disturbance [Recovered/Resolved]
  - Transient ischaemic attack [Unknown]
  - Cluster headache [Recovered/Resolved]
  - Dyspnoea [Recovered/Resolved]
  - Confusional state [Recovered/Resolved]
  - Eye pain [Recovered/Resolved]
  - Dizziness [Recovered/Resolved]
  - Nausea [Recovered/Resolved]
  - Pollakiuria [Unknown]
  - Hot flush [Recovered/Resolved]
  - Constipation [Recovered/Resolved]
  - Hyperhidrosis [Recovered/Resolved]
  - Vomiting [Recovered/Resolved]
  - Fatigue [Not Recovered/Not Resolved]
  - Insomnia [Unknown]
  - Underdose [Unknown]
  - Product use issue [Unknown]

NARRATIVE: CASE EVENT DATE: 20250101
